FAERS Safety Report 7070665-7 (Version None)
Quarter: 2010Q4

REPORT INFORMATION
  Report Type: 
  Country: None (occurrence: None)
  Receive Date: 20101029
  Receipt Date: 20101022
  Transmission Date: 20110411
  Serious: Yes (Other)
  Sender: FDA-Public Use
  Company Number: AU-PFIZER INC-2010134928

PATIENT
  Sex: Male

DRUGS (3)
  1. LIPITOR [Suspect]
     Indication: LOW DENSITY LIPOPROTEIN INCREASED
     Dosage: 80 MG, 1X/DAY
     Dates: start: 20021001, end: 20101001
  2. CLARITHROMYCIN [Interacting]
     Dosage: UNK
  3. ANTACIDS [Interacting]
     Dosage: UNK

REACTIONS (3)
  - DRUG INTERACTION [None]
  - LABELLED DRUG-DRUG INTERACTION MEDICATION ERROR [None]
  - PARALYSIS [None]
